FAERS Safety Report 6988110-6 (Version None)
Quarter: 2010Q3

REPORT INFORMATION
  Report Type: 
  Country: None (occurrence: None)
  Receive Date: 20100916
  Receipt Date: 20100907
  Transmission Date: 20110219
  Serious: Yes (Hospitalization)
  Sender: FDA-Public Use
  Company Number: B0672558A

PATIENT
  Sex: Female

DRUGS (2)
  1. AUGMENTIN '125' [Suspect]
  2. ATARAX [Suspect]
     Dosage: 50MG PER DAY
     Route: 030
     Dates: start: 20100717, end: 20100717

REACTIONS (2)
  - DYSKINESIA [None]
  - URTICARIA [None]
